FAERS Safety Report 9788415 (Version 3)
Quarter: 2014Q1

REPORT INFORMATION
  Report Type: Report from Study
  Country: US (occurrence: US)
  Receive Date: 20131230
  Receipt Date: 20140116
  Transmission Date: 20141002
  Serious: Yes (Other)
  Sender: FDA-Public Use
  Company Number: PHEH2013US025396

PATIENT
  Age: 68 Year
  Sex: Female

DRUGS (4)
  1. TOBI [Suspect]
     Indication: INFECTIVE EXACERBATION OF BRONCHIECTASIS
     Dosage: UNK
     Route: 055
     Dates: start: 2006, end: 2008
  2. TOBI [Suspect]
     Indication: PSEUDOMONAS BRONCHITIS
     Dosage: 300 MG, BID
     Route: 055
  3. TOBI [Suspect]
     Indication: BRONCHIECTASIS
     Dosage: 300 MG, BID
     Route: 055
     Dates: start: 20130212, end: 20130212
  4. TOBI [Suspect]
     Dosage: 300 MG, BID
     Route: 055
     Dates: start: 20131202, end: 20131203

REACTIONS (2)
  - Respiratory disorder [Recovering/Resolving]
  - Dyspnoea [Recovered/Resolved]
